FAERS Safety Report 4737380-3 (Version None)
Quarter: 2005Q3

REPORT INFORMATION
  Report Type: 
  Country: None (occurrence: None)
  Receive Date: 20050805
  Receipt Date: 20050719
  Transmission Date: 20060218
  Serious: Yes (Other)
  Sender: FDA-Public Use
  Company Number: ATO-05-0273

PATIENT
  Age: 35 Year
  Sex: Female

DRUGS (2)
  1. TRISENOX [Suspect]
     Indication: ACUTE PROMYELOCYTIC LEUKAEMIA
     Dosage: IVI
     Route: 042
     Dates: start: 20050601
  2. ATRA [Suspect]
     Indication: ACUTE PROMYELOCYTIC LEUKAEMIA
     Dates: start: 20050601, end: 20050601

REACTIONS (5)
  - ABDOMINAL PAIN [None]
  - BILE DUCT OBSTRUCTION [None]
  - GASTROINTESTINAL OBSTRUCTION [None]
  - LIVER DISORDER [None]
  - PANCREATIC ENZYMES INCREASED [None]
